FAERS Safety Report 16198997 (Version 1)
Quarter: 2019Q2

REPORT INFORMATION
  Report Type: Spontaneous
  Country: US (occurrence: US)
  Receive Date: 20190415
  Receipt Date: 20190415
  Transmission Date: 20190711
  Serious: Yes (Other)
  Sender: FDA-Public Use
  Company Number: US-TEVA-2019-US-1037029

PATIENT
  Sex: Male

DRUGS (1)
  1. EPINEPHRINE TEVA [Suspect]
     Active Substance: EPINEPHRINE
     Indication: DRUG HYPERSENSITIVITY
     Dosage: FORM STRENGTH: 0.3 MG/ 0.3 ML.
     Route: 065
     Dates: start: 201903

REACTIONS (3)
  - Pharyngeal swelling [Unknown]
  - Dyspnoea [Unknown]
  - Drug ineffective [Unknown]

NARRATIVE: CASE EVENT DATE: 20190329
